FAERS Safety Report 10152947 (Version 1)
Quarter: 2014Q2

REPORT INFORMATION
  Report Type: Spontaneous
  Country: US (occurrence: US)
  Receive Date: 20140505
  Receipt Date: 20140505
  Transmission Date: 20141212
  Serious: No
  Sender: FDA-Public Use
  Company Number: US-ASTRAZENECA-2013SE85721

PATIENT
  Sex: Female

DRUGS (3)
  1. PRILOSEC OTC [Suspect]
     Indication: DYSPEPSIA
     Route: 048
  2. METFORMIN [Interacting]
     Route: 048
  3. FOLIC ACID [Interacting]
     Route: 065

REACTIONS (2)
  - Drug interaction [Unknown]
  - Drug effect decreased [Unknown]
